FAERS Safety Report 7457420-0 (Version None)
Quarter: 2011Q2

REPORT INFORMATION
  Report Type: 
  Country: None (occurrence: None)
  Receive Date: 20110504
  Receipt Date: 20110427
  Transmission Date: 20111010
  Serious: Yes (Other)
  Sender: FDA-Public Use
  Company Number: PHHY2010MX49698

PATIENT
  Sex: Female

DRUGS (8)
  1. ACLASTA [Suspect]
     Indication: OSTEOPOROSIS
     Dosage: 5 MG
     Route: 042
     Dates: start: 20100724
  2. PARACETAMOL [Interacting]
  3. CAPTOPRIL [Concomitant]
  4. DOLO-NEUROBION [Interacting]
     Dosage: UNK
     Dates: start: 20100726
  5. OMEPRAZOLE [Concomitant]
  6. NORVASC [Concomitant]
  7. BIPASMIN COMPUESTO [Concomitant]
  8. CHLORPHENAMINE [Concomitant]

REACTIONS (17)
  - DRY SKIN [None]
  - RASH [None]
  - THIRST [None]
  - DRUG INTERACTION [None]
  - ACNE [None]
  - NIGHTMARE [None]
  - INSOMNIA [None]
  - INFLAMMATION [None]
  - CHILLS [None]
  - TOOTHACHE [None]
  - HYPERSENSITIVITY [None]
  - PRURITUS GENERALISED [None]
  - NECK PAIN [None]
  - ARTHRALGIA [None]
  - TOXICITY TO VARIOUS AGENTS [None]
  - PYREXIA [None]
  - PAIN IN EXTREMITY [None]
